FAERS Safety Report 9817925 (Version 1)
Quarter: 2014Q1

REPORT INFORMATION
  Report Type: Spontaneous
  Country: US (occurrence: None)
  Receive Date: 20140110
  Receipt Date: 20140110
  Transmission Date: 20141002
  Serious: Yes (Other)
  Sender: FDA-Public Use
  Company Number: None

PATIENT
  Age: 27 Year
  Sex: Female

DRUGS (1)
  1. OCTREOTIDE [Suspect]
     Dosage: 200 MCG QID SQ
     Route: 058
     Dates: start: 201306

REACTIONS (1)
  - Skin discolouration [None]
